FAERS Safety Report 13287216 (Version 1)
Quarter: 2017Q1

REPORT INFORMATION
  Report Type: Spontaneous
  Country: US (occurrence: US)
  Receive Date: 20170302
  Receipt Date: 20170302
  Transmission Date: 20170428
  Serious: No
  Sender: FDA-Public Use
  Company Number: US-PURDUE-USA-2016-0135044

PATIENT
  Age: 51 Year
  Sex: Female
  Weight: 50.79 kg

DRUGS (3)
  1. OXYCODONE/ ACETAMINOPHEN TABLETS [Suspect]
     Active Substance: ACETAMINOPHEN\OXYCODONE HYDROCHLORIDE
     Dosage: 10/325 MG, TID
     Route: 048
     Dates: start: 201606, end: 201607
  2. OXYCODONE/ ACETAMINOPHEN TABLETS [Suspect]
     Active Substance: ACETAMINOPHEN\OXYCODONE HYDROCHLORIDE
     Indication: PAIN MANAGEMENT
     Dosage: 7.5/325 MG, TID
     Route: 048
     Dates: start: 201611
  3. OXYCODONE/ ACETAMINOPHEN TABLETS [Suspect]
     Active Substance: ACETAMINOPHEN\OXYCODONE HYDROCHLORIDE
     Dosage: 7.5/325 MG, TID
     Route: 048
     Dates: start: 201607, end: 201608

REACTIONS (6)
  - Fatigue [Not Recovered/Not Resolved]
  - Pain [Not Recovered/Not Resolved]
  - Disturbance in attention [Not Recovered/Not Resolved]
  - Dizziness [Not Recovered/Not Resolved]
  - Headache [Not Recovered/Not Resolved]
  - Inadequate analgesia [Not Recovered/Not Resolved]

NARRATIVE: CASE EVENT DATE: 201606
